FAERS Safety Report 6116644-5 (Version None)
Quarter: 2009Q1

REPORT INFORMATION
  Report Type: 
  Country: None (occurrence: None)
  Receive Date: 20090314
  Receipt Date: 20081219
  Transmission Date: 20090719
  Serious: No
  Sender: FDA-Public Use
  Company Number: US-ABBOTT-08P-163-0494403-00

PATIENT
  Sex: Female
  Weight: 84.444 kg

DRUGS (12)
  1. HUMIRA [Suspect]
     Indication: DRUG USE FOR UNKNOWN INDICATION
     Route: 058
  2. LISINOPRIL [Concomitant]
     Indication: HYPERTENSION
     Route: 048
     Dates: start: 19980101
  3. LIPITOR [Concomitant]
     Indication: BLOOD CHOLESTEROL INCREASED
     Route: 048
     Dates: start: 20060101
  4. NAPROXEN [Concomitant]
     Indication: PAIN
     Dosage: 0.5  TABLET BID
     Route: 048
  5. OMEPRAZOLE [Concomitant]
     Indication: DYSPEPSIA
     Route: 048
     Dates: start: 19990501
  6. OMEPRAZOLE [Concomitant]
     Indication: DYSPHAGIA
  7. NYSTATIN [Concomitant]
     Indication: DRUG USE FOR UNKNOWN INDICATION
     Dosage: 500,000 UNITS 2 IN ONE DAY
     Route: 048
     Dates: start: 20071201
  8. IRON SUPPLEMENT [Concomitant]
     Indication: RESTLESS LEGS SYNDROME
     Route: 048
     Dates: start: 20050101
  9. VITAMIN D [Concomitant]
     Indication: VITAMIN SUPPLEMENTATION
     Route: 048
     Dates: start: 20080301
  10. FISH OIL [Concomitant]
     Indication: VITAMIN SUPPLEMENTATION
     Route: 048
  11. MAGNESIUM SULFATE [Concomitant]
     Indication: VITAMIN SUPPLEMENTATION
     Dosage: 1/2 TAB TWICE DAILY
     Route: 048
  12. MULTI-VITAMIN [Concomitant]
     Indication: VITAMIN SUPPLEMENTATION
     Route: 048

REACTIONS (4)
  - BACK PAIN [None]
  - CONTUSION [None]
  - HAEMORRHAGE [None]
  - VITAMIN D DEFICIENCY [None]
